FAERS Safety Report 17224904 (Version 3)
Quarter: 2020Q1

REPORT INFORMATION
  Report Type: Report from Study
  Country: CA (occurrence: CA)
  Receive Date: 20200102
  Receipt Date: 20200204
  Transmission Date: 20200409
  Serious: Yes (Hospitalization, Other)
  Sender: FDA-Public Use
  Company Number: CA-BAYER-2019-213875

PATIENT
  Age: 69 Year
  Sex: Female

DRUGS (1)
  1. STIVARGA [Suspect]
     Active Substance: REGORAFENIB
     Indication: COLORECTAL CANCER METASTATIC
     Dosage: DAILY DOSE 80 MG  (X 21)
     Route: 048

REACTIONS (10)
  - Nephritis bacterial [None]
  - Fatigue [Unknown]
  - Bacterial sepsis [None]
  - Hyperthyroidism [Unknown]
  - Colorectal cancer metastatic [None]
  - Off label use [None]
  - Nausea [Unknown]
  - Diarrhoea [Unknown]
  - Malaise [None]
  - Vomiting [Unknown]
